APPROVED DRUG PRODUCT: GRANISETRON HYDROCHLORIDE
Active Ingredient: GRANISETRON HYDROCHLORIDE
Strength: EQ 1MG BASE
Dosage Form/Route: TABLET;ORAL
Application: A078725 | Product #001
Applicant: AUROBINDO PHARMA USA INC
Approved: Jan 30, 2008 | RLD: No | RS: No | Type: DISCN